FAERS Safety Report 5564671-9 (Version None)
Quarter: 2007Q4

REPORT INFORMATION
  Report Type: 
  Country: None (occurrence: None)
  Receive Date: 20071213
  Receipt Date: 20071213
  Transmission Date: 20080405
  Serious: Yes (Other)
  Sender: FDA-Public Use
  Company Number: None

PATIENT
  Sex: Female
  Weight: 106 kg

DRUGS (2)
  1. XOLAIR [Suspect]
     Indication: ASTHMA
     Dosage: 300 MG WEEKLY IM
     Route: 030
     Dates: start: 20060906, end: 20070911
  2. ASMANEX TWISTHALER [Concomitant]

REACTIONS (3)
  - DIARRHOEA [None]
  - ERYTHEMA NODOSUM [None]
  - PITTING OEDEMA [None]
